FAERS Safety Report 8252090-6 (Version None)
Quarter: 2012Q2

REPORT INFORMATION
  Report Type: 
  Country: None (occurrence: None)
  Receive Date: 20120402
  Receipt Date: 20111004
  Transmission Date: 20120825
  Serious: No
  Sender: FDA-Public Use
  Company Number: US-ABBOTT-09P-163-0795850-00

PATIENT
  Sex: Male

DRUGS (3)
  1. ANDROGEL [Suspect]
     Dosage: DAILY DOSE: 10 GRAM(S), VIA PUMP
     Route: 062
     Dates: start: 20090101
  2. ANDROGEL [Suspect]
     Indication: BLOOD TESTOSTERONE DECREASED
     Dosage: DAILY
     Route: 062
     Dates: start: 20060130
  3. ANDROGEL [Suspect]
     Dosage: DAILY DOSE: 10 GRAM(S) 'PACKETS'
     Route: 062
     Dates: start: 20091101

REACTIONS (5)
  - DEPRESSION [None]
  - DRUG DOSE OMISSION [None]
  - ASTHENIA [None]
  - FATIGUE [None]
  - MALAISE [None]
